FAERS Safety Report 17830896 (Version 2)
Quarter: 2020Q2

REPORT INFORMATION
  Report Type: Spontaneous
  Country: AR (occurrence: AR)
  Receive Date: 20200527
  Receipt Date: 20200605
  Transmission Date: 20200714
  Serious: Yes (Hospitalization)
  Sender: FDA-Public Use
  Company Number: AR-PFIZER INC-2020209066

PATIENT
  Age: 74 Year
  Sex: Male

DRUGS (4)
  1. VALSARTAN. [Concomitant]
     Active Substance: VALSARTAN
  2. AMLODIPINE [Concomitant]
     Active Substance: AMLODIPINE BESYLATE
  3. CARVEDILOL. [Concomitant]
     Active Substance: CARVEDILOL
  4. INLYTA [Suspect]
     Active Substance: AXITINIB
     Indication: RENAL CANCER METASTATIC
     Dosage: 5MG, 2X/DAY
     Dates: start: 20190503

REACTIONS (8)
  - Prostatic disorder [Unknown]
  - Hypertension [Unknown]
  - Pain in extremity [Recovering/Resolving]
  - Renal haemorrhage [Recovered/Resolved]
  - Abdominal discomfort [Unknown]
  - Thyroid disorder [Unknown]
  - Malaise [Recovered/Resolved]
  - Haematoma [Recovered/Resolved]

NARRATIVE: CASE EVENT DATE: 202002
